FAERS Safety Report 6282467-X (Version None)
Quarter: 2009Q3

REPORT INFORMATION
  Report Type: 
  Country: None (occurrence: None)
  Receive Date: 20090724
  Receipt Date: 20090722
  Transmission Date: 20100115
  Serious: Yes (Life-Threatening)
  Sender: FDA-Public Use
  Company Number: US-JNJFOC-20090707510

PATIENT
  Age: 65 Year
  Sex: Male

DRUGS (2)
  1. HALOPERIDOL [Suspect]
     Indication: AGITATION
     Route: 042
  2. LORAZEPAM [Concomitant]
     Indication: RESTLESSNESS
     Route: 042

REACTIONS (5)
  - DISSEMINATED INTRAVASCULAR COAGULATION [None]
  - HYPOTENSION [None]
  - NEUROLEPTIC MALIGNANT SYNDROME [None]
  - RENAL FAILURE ACUTE [None]
  - RESPIRATORY ARREST [None]
